FAERS Safety Report 18634448 (Version 1)
Quarter: 2020Q4

REPORT INFORMATION
  Report Type: Spontaneous
  Country: SG (occurrence: SG)
  Receive Date: 20201218
  Receipt Date: 20201218
  Transmission Date: 20210114
  Serious: Yes (Hospitalization, Other)
  Sender: FDA-Public Use
  Company Number: SG-UNIQUE PHARMACEUTICAL LABORATORIES, A DIV. OF JBCPL-2020UNI000004

PATIENT
  Age: 68 Year
  Sex: Male

DRUGS (4)
  1. LITHIUM CARBONATE. [Suspect]
     Active Substance: LITHIUM CARBONATE
     Dosage: 1 GRAM, QD
     Route: 065
  2. LITHIUM CARBONATE. [Suspect]
     Active Substance: LITHIUM CARBONATE
     Indication: BIPOLAR I DISORDER
     Dosage: 1000-1500 MG/DAY
     Route: 065
  3. LITHIUM CARBONATE. [Suspect]
     Active Substance: LITHIUM CARBONATE
     Dosage: 800 MILLIGRAM, QD
     Route: 065
  4. HALOPERIDOL. [Concomitant]
     Active Substance: HALOPERIDOL
     Indication: BIPOLAR I DISORDER
     Dosage: 4.5 MILLIGRAM, QD
     Route: 065

REACTIONS (3)
  - Atrioventricular block second degree [Recovered/Resolved]
  - Syncope [Unknown]
  - Subdural haematoma [Unknown]
